FAERS Safety Report 16462607 (Version 1)
Quarter: 2019Q2

REPORT INFORMATION
  Report Type: Spontaneous
  Country: AU (occurrence: AU)
  Receive Date: 20190621
  Receipt Date: 20190621
  Transmission Date: 20190711
  Serious: Yes (Other)
  Sender: FDA-Public Use
  Company Number: AU-TEVA-2019-AU-1065417

PATIENT
  Age: 25 Year
  Sex: Male

DRUGS (5)
  1. FENTANYL. [Suspect]
     Active Substance: FENTANYL
     Dosage: DOSAGE UNKNOWN
     Route: 062
  2. TEMAZEPAM. [Concomitant]
     Active Substance: TEMAZEPAM
  3. FLUOXETINE [Concomitant]
     Active Substance: FLUOXETINE HYDROCHLORIDE
  4. OLANZAPINE. [Concomitant]
     Active Substance: OLANZAPINE
  5. QUETIAPINE. [Concomitant]
     Active Substance: QUETIAPINE

REACTIONS (3)
  - Toxicity to various agents [Unknown]
  - Overdose [Unknown]
  - Drug abuse [Unknown]
